FAERS Safety Report 20591709 (Version 6)
Quarter: 2025Q3

REPORT INFORMATION
  Report Type: Spontaneous
  Country: US (occurrence: US)
  Receive Date: 20220314
  Receipt Date: 20250916
  Transmission Date: 20251021
  Serious: Yes (Hospitalization, Other)
  Sender: PFIZER
  Company Number: US-PFIZER INC-202100958414

PATIENT
  Age: 60 Year
  Sex: Male

DRUGS (11)
  1. XELJANZ XR [Suspect]
     Active Substance: TOFACITINIB CITRATE
     Indication: Rheumatoid arthritis
     Dosage: 11 MG, 1X/DAY
     Route: 048
     Dates: start: 20210621, end: 20210829
  2. XELJANZ XR [Suspect]
     Active Substance: TOFACITINIB CITRATE
     Dates: start: 20210905
  3. XELJANZ XR [Suspect]
     Active Substance: TOFACITINIB CITRATE
     Dosage: 11 MG, 1X/DAY
     Route: 048
     Dates: start: 20220128, end: 202311
  4. XELJANZ XR [Suspect]
     Active Substance: TOFACITINIB CITRATE
     Dosage: 11 MG, 1X/DAY
     Route: 048
     Dates: start: 202411, end: 202411
  5. XELJANZ XR [Suspect]
     Active Substance: TOFACITINIB CITRATE
     Dosage: 11 MG, 1X/DAY
     Route: 048
     Dates: start: 202411, end: 202411
  6. XELJANZ XR [Suspect]
     Active Substance: TOFACITINIB CITRATE
     Dosage: 11 MG, 1X/DAY
     Route: 048
     Dates: start: 202411
  7. XELJANZ XR [Suspect]
     Active Substance: TOFACITINIB CITRATE
     Dosage: 11 MG, 1X/DAY
     Route: 048
  8. CELEBREX [Concomitant]
     Active Substance: CELECOXIB
  9. GABAPENTIN [Concomitant]
     Active Substance: GABAPENTIN
  10. RINVOQ [Concomitant]
     Active Substance: UPADACITINIB
  11. PLAQUENIL [Concomitant]
     Active Substance: HYDROXYCHLOROQUINE SULFATE
     Indication: Pain in extremity
     Dates: start: 2025

REACTIONS (16)
  - Eye haemorrhage [Unknown]
  - Eye laser surgery [Unknown]
  - Drug ineffective [Unknown]
  - Inappropriate schedule of product administration [Unknown]
  - Product dose omission issue [Unknown]
  - Pain [Unknown]
  - Musculoskeletal stiffness [Unknown]
  - COVID-19 [Unknown]
  - Herpes zoster [Unknown]
  - Pain in extremity [Unknown]
  - Motor dysfunction [Unknown]
  - Visual impairment [Unknown]
  - Visual field defect [Unknown]
  - Urinary tract infection [Unknown]
  - Gastrointestinal microorganism overgrowth [Unknown]
  - Condition aggravated [Not Recovered/Not Resolved]

NARRATIVE: CASE EVENT DATE: 20240101
